FAERS Safety Report 8268984-1 (Version None)
Quarter: 2012Q2

REPORT INFORMATION
  Report Type: 
  Country: None (occurrence: None)
  Receive Date: 20120409
  Receipt Date: 20120403
  Transmission Date: 20120825
  Serious: Yes (Life-Threatening, Hospitalization)
  Sender: FDA-Public Use
  Company Number: FR-TEVA-328491USA

PATIENT
  Sex: Male

DRUGS (7)
  1. TREANDA [Suspect]
     Indication: CHRONIC LYMPHOCYTIC LEUKAEMIA
     Route: 042
     Dates: start: 20120124
  2. VALACICLOVIR [Concomitant]
     Indication: INFECTION PROPHYLAXIS
     Dates: start: 20120123
  3. ALLOPURINOL [Concomitant]
     Indication: TUMOUR LYSIS SYNDROME
     Dates: start: 20120123
  4. HEPARIN SODIUM [Concomitant]
     Dates: start: 20120123, end: 20120305
  5. ACETAMINOPHEN [Concomitant]
     Dates: start: 20120123, end: 20120123
  6. RITUXIMAB [Suspect]
     Indication: CHRONIC LYMPHOCYTIC LEUKAEMIA
     Dates: start: 20120123
  7. DEXCHLORPHENIRAMINE MALEATE [Concomitant]
     Dates: start: 20120123, end: 20120123

REACTIONS (4)
  - LUNG DISORDER [None]
  - ASTHENIA [None]
  - HYPOXIA [None]
  - WEIGHT DECREASED [None]
